FAERS Safety Report 7792177-5 (Version None)
Quarter: 2011Q4

REPORT INFORMATION
  Report Type: 
  Country: None (occurrence: None)
  Receive Date: 20111003
  Receipt Date: 20111003
  Transmission Date: 20120403
  Serious: Yes (Other)
  Sender: FDA-Public Use
  Company Number: None

PATIENT
  Age: 62 Year
  Sex: Male
  Weight: 92.532 kg

DRUGS (1)
  1. UNISOM [Suspect]
     Indication: INSOMNIA
     Dosage: 1/2 TABLET
     Route: 048
     Dates: start: 20060101, end: 20110930

REACTIONS (4)
  - PRODUCT FORMULATION ISSUE [None]
  - DRUG EFFECT INCREASED [None]
  - SOMNOLENCE [None]
  - IMPAIRED DRIVING ABILITY [None]
